FAERS Safety Report 5918550-5 (Version None)
Quarter: 2008Q4

REPORT INFORMATION
  Report Type: 
  Country: None (occurrence: None)
  Receive Date: 20081014
  Receipt Date: 20081014
  Transmission Date: 20090506
  Serious: Yes (Life-Threatening, Hospitalization)
  Sender: FDA-Public Use
  Company Number: None

PATIENT
  Age: 85 Year
  Sex: Female

DRUGS (10)
  1. FERRLECIT [Suspect]
     Indication: ANAEMIA
     Dosage: 250MG ONCE IV DRIP
     Route: 041
     Dates: start: 20080926, end: 20080926
  2. LISINOPRIL [Concomitant]
  3. CRESTOR [Concomitant]
  4. NORVASC [Concomitant]
  5. LASIX [Concomitant]
  6. JANUVIA [Concomitant]
  7. PLAVIX [Concomitant]
  8. TRAMADOL HCL [Concomitant]
  9. NEXIUM [Concomitant]
  10. FOSAMAX [Concomitant]

REACTIONS (4)
  - ANAPHYLACTIC REACTION [None]
  - CARDIO-RESPIRATORY ARREST [None]
  - PULSE ABSENT [None]
  - UNRESPONSIVE TO STIMULI [None]
